FAERS Safety Report 8924766 (Version 1)
Quarter: 2012Q4

REPORT INFORMATION
  Report Type: 
  Country: CH (occurrence: CH)
  Receive Date: 20121126
  Receipt Date: 20121126
  Transmission Date: 20130627
  Serious: Yes (Life-Threatening, Hospitalization)
  Sender: FDA-Public Use
  Company Number: CH-PFIZER INC-2012293300

PATIENT
  Age: 73 Year
  Sex: Female
  Weight: 82 kg

DRUGS (18)
  1. ZOLOFT [Suspect]
     Indication: DEPRESSIVE DISORDER
     Dosage: 50 mg, 1x/day
     Route: 048
     Dates: end: 20121014
  2. CLEXANE [Interacting]
     Indication: ATRIAL FIBRILLATION
     Dosage: 70 mg, 2x/day (1 per 12 hours)
     Route: 058
     Dates: start: 20121009, end: 20121014
  3. CLEXANE [Interacting]
     Indication: ATRIAL FLUTTER
  4. DILATREND [Concomitant]
     Dosage: 6.25 mg, 2x/day
     Route: 048
  5. DEPAKINE [Concomitant]
     Dosage: 500 mg, 2x/day
  6. ASPIRIN CARDIO [Concomitant]
     Dosage: 100 mg, 1x/day
     Route: 048
     Dates: end: 20121009
  7. TOREM [Concomitant]
     Dosage: 10 mg, 1x/day
     Route: 048
  8. ENATEC [Concomitant]
     Dosage: 20 mg, 2x/day
     Route: 048
  9. IRFEN [Concomitant]
     Dosage: 400 mg, as needed (maximal 3x/day)
     Route: 048
     Dates: end: 20121009
  10. DAFALGAN [Concomitant]
     Dosage: 1000 mg, as needed (maximal 3x/day)
     Route: 048
  11. DAFALGAN [Concomitant]
     Dosage: 600 mg, 3x/day
     Route: 054
     Dates: start: 20121009
  12. CO AMOXICILLIN [Concomitant]
     Dosage: 1.2 g, 3x/day (1 per 8 hours)
     Route: 041
     Dates: start: 20121009
  13. ORFIRIL ^DESITIN^ [Concomitant]
     Dosage: 500 mg, 2x/day
     Route: 048
     Dates: start: 20121009
  14. DIGOXINE [Concomitant]
     Dosage: 0.25 mg, 1x/day
     Route: 048
     Dates: start: 20121009
  15. LAXOBERON [Concomitant]
     Dosage: 15 Gtt, 1x/day
     Route: 048
     Dates: start: 20121009
  16. VI-DE 3 [Concomitant]
     Dosage: 3 Gtt, 1x/day
     Dates: start: 20121009
  17. LASIX [Concomitant]
     Dosage: 40 mg, 1x/day
     Dates: start: 20121009
  18. LASIX [Concomitant]
     Dosage: 20 mg, UNK

REACTIONS (2)
  - Drug interaction [Unknown]
  - Subdural haematoma [Not Recovered/Not Resolved]
